FAERS Safety Report 24106443 (Version 1)
Quarter: 2024Q3

REPORT INFORMATION
  Report Type: Spontaneous
  Country: IT (occurrence: IT)
  Receive Date: 20240717
  Receipt Date: 20240717
  Transmission Date: 20241016
  Serious: Yes (Other)
  Sender: PFIZER
  Company Number: IT-PFIZER INC-PV202400092802

PATIENT
  Age: 7 Decade
  Sex: Female

DRUGS (9)
  1. DOXORUBICIN HYDROCHLORIDE [Interacting]
     Active Substance: DOXORUBICIN HYDROCHLORIDE
     Indication: Breast cancer female
     Dosage: UNK
  2. TRASTUZUMAB [Interacting]
     Active Substance: TRASTUZUMAB
     Indication: Breast cancer female
     Dosage: UNK UNK, WEEKLY
  3. PACLITAXEL [Interacting]
     Active Substance: PACLITAXEL
     Indication: Breast cancer female
     Dosage: UNK UNK, WEEKLY
  4. CYCLOPHOSPHAMIDE [Interacting]
     Active Substance: CYCLOPHOSPHAMIDE
     Indication: Breast cancer female
     Dosage: UNK
  5. RALTEGRAVIR [Concomitant]
     Active Substance: RALTEGRAVIR
     Indication: Antiretroviral therapy
     Dosage: UNK, 2X/DAY
  6. LAMIVUDINE [Concomitant]
     Active Substance: LAMIVUDINE
     Indication: Antiretroviral therapy
     Dosage: UNK
  7. DARUNAVIR\RITONAVIR [Concomitant]
     Active Substance: DARUNAVIR\RITONAVIR
     Dosage: UNK, 2X/DAY
  8. ETRAVIRINE [Concomitant]
     Active Substance: ETRAVIRINE
     Dosage: UNK, 2X/DAY
  9. ENTECAVIR [Concomitant]
     Active Substance: ENTECAVIR
     Dosage: UNK, 2X/DAY

REACTIONS (1)
  - Drug interaction [Unknown]
